FAERS Safety Report 8303687-6 (Version None)
Quarter: 2012Q2

REPORT INFORMATION
  Report Type: 
  Country: None (occurrence: None)
  Receive Date: 20120423
  Receipt Date: 20120418
  Transmission Date: 20120825
  Serious: Yes (Other)
  Sender: FDA-Public Use
  Company Number: NZ-PFIZER INC-2012096428

PATIENT
  Sex: Female

DRUGS (1)
  1. INSPRA [Suspect]

REACTIONS (4)
  - TONGUE DISORDER [None]
  - MOUTH ULCERATION [None]
  - OROPHARYNGEAL BLISTERING [None]
  - ORAL PAIN [None]
